FAERS Safety Report 6823525-8 (Version None)
Quarter: 2010Q3

REPORT INFORMATION
  Report Type: 
  Country: None (occurrence: None)
  Receive Date: 20100708
  Receipt Date: 20100524
  Transmission Date: 20110219
  Serious: Yes (Death, Life-Threatening, Other)
  Sender: FDA-Public Use
  Company Number: US-BAXTER-2010BH001926

PATIENT
  Age: 81 Year
  Sex: Female

DRUGS (7)
  1. HEPARIN SODIUM [Suspect]
     Indication: PRODUCT USED FOR UNKNOWN INDICATION
     Route: 058
     Dates: start: 20080110, end: 20080112
  2. HEPARIN SODIUM [Suspect]
     Route: 058
     Dates: start: 20080210, end: 20080201
  3. METOPROLOL [Concomitant]
     Indication: PRODUCT USED FOR UNKNOWN INDICATION
     Route: 065
  4. PREVACID [Concomitant]
     Indication: PRODUCT USED FOR UNKNOWN INDICATION
     Route: 065
  5. DULCOLAX [Concomitant]
     Indication: PRODUCT USED FOR UNKNOWN INDICATION
     Route: 065
  6. LIDODERM [Concomitant]
     Indication: PRODUCT USED FOR UNKNOWN INDICATION
     Route: 065
  7. HYDROCHLOROTHIAZIDE [Concomitant]
     Indication: PRODUCT USED FOR UNKNOWN INDICATION
     Route: 065

REACTIONS (11)
  - BLISTER [None]
  - BLOOD PRESSURE DECREASED [None]
  - CIRCULATORY COLLAPSE [None]
  - DYSPNOEA [None]
  - ECZEMA WEEPING [None]
  - HEPARIN-INDUCED THROMBOCYTOPENIA [None]
  - HYPERHIDROSIS [None]
  - NAUSEA [None]
  - PLEURAL EFFUSION [None]
  - PYREXIA [None]
  - VOMITING [None]
